FAERS Safety Report 12727361 (Version 1)
Quarter: 2016Q3

REPORT INFORMATION
  Report Type: Spontaneous
  Country: NO (occurrence: NO)
  Receive Date: 20160909
  Receipt Date: 20160909
  Transmission Date: 20161109
  Serious: Yes (Other)
  Sender: FDA-Public Use
  Company Number: NO-SUN PHARMACEUTICAL INDUSTRIES LTD-2016R1-123620

PATIENT
  Age: 55 Year
  Sex: Female

DRUGS (2)
  1. CLOXACILLIN [Suspect]
     Active Substance: CLOXACILLIN
     Indication: PRODUCT USED FOR UNKNOWN INDICATION
     Route: 065
  2. CLINDAMYCIN [Suspect]
     Active Substance: CLINDAMYCIN\CLINDAMYCIN PHOSPHATE
     Indication: PRODUCT USED FOR UNKNOWN INDICATION
     Dosage: UNK
     Route: 065

REACTIONS (2)
  - Acute kidney injury [Recovered/Resolved]
  - Rash maculo-papular [Recovered/Resolved]
